FAERS Safety Report 8699620 (Version 7)
Quarter: 2013Q2

REPORT INFORMATION
  Report Type: Spontaneous
  Country: US (occurrence: US)
  Receive Date: 20120802
  Receipt Date: 20130627
  Transmission Date: 20140414
  Serious: Yes (Hospitalization, Disabling, Other)
  Sender: FDA-Public Use
  Company Number: US-009507513-1207USA008642

PATIENT
  Sex: Female
  Weight: 69.39 kg

DRUGS (4)
  1. FOSAMAX [Suspect]
     Indication: OSTEOPOROSIS
     Dosage: 70 MG, QW
     Route: 048
     Dates: start: 20070321, end: 200803
  2. FOSAMAX [Suspect]
     Indication: OSTEOPENIA
  3. FOSAMAX PLUS D [Suspect]
     Dosage: 70 MG, UNK
     Route: 048
     Dates: start: 20070111
  4. ALENDRONATE SODIUM [Suspect]
     Indication: OSTEOPOROSIS
     Dosage: 70 MG, QW
     Route: 048
     Dates: start: 200803, end: 201104

REACTIONS (29)
  - Femur fracture [Unknown]
  - Intramedullary rod insertion [Unknown]
  - Fracture delayed union [Unknown]
  - Fall [Unknown]
  - Anaemia [Unknown]
  - Deep vein thrombosis [Unknown]
  - Transient ischaemic attack [Unknown]
  - Cervical radiculopathy [Recovered/Resolved]
  - Disability [Unknown]
  - Low turnover osteopathy [Unknown]
  - Anxiety [Unknown]
  - Depression [Unknown]
  - Bone disorder [Unknown]
  - Hysterectomy [Unknown]
  - Gastric disorder [Unknown]
  - Irritable bowel syndrome [Unknown]
  - Dental implantation [Unknown]
  - Asthma [Unknown]
  - Angioplasty [Unknown]
  - Tonsillectomy [Unknown]
  - Elbow operation [Unknown]
  - Knee operation [Unknown]
  - Migraine [Unknown]
  - Osteoarthritis [Unknown]
  - Fracture [Unknown]
  - Atelectasis [Unknown]
  - Induration [Unknown]
  - Vertigo [Unknown]
  - Gastrooesophageal reflux disease [Unknown]
